FAERS Safety Report 19423064 (Version 1)
Quarter: 2021Q2

REPORT INFORMATION
  Report Type: Spontaneous
  Country: US (occurrence: US)
  Receive Date: 20210616
  Receipt Date: 20210616
  Transmission Date: 20210717
  Serious: Yes (Hospitalization)
  Sender: FDA-Public Use
  Company Number: US-MYLANLABS-2021M1034319

PATIENT
  Age: 35 Year
  Sex: Male

DRUGS (8)
  1. GABAPENTIN. [Suspect]
     Active Substance: GABAPENTIN
     Indication: PROMOTION OF WOUND HEALING
  2. CLONIDINE. [Suspect]
     Active Substance: CLONIDINE
     Indication: PROMOTION OF WOUND HEALING
  3. KETAMINE [Suspect]
     Active Substance: KETAMINE
     Indication: PAIN
     Dosage: REPEATED APPLICATION OF A FAMILY MEMBER^S TOPICAL COMPOUNDED PAIN?RELIEVING CREAM INCLUDED..
     Route: 061
  4. GABAPENTIN. [Suspect]
     Active Substance: GABAPENTIN
     Indication: PAIN
     Dosage: REPEATED APPLICATION OF A FAMILY MEMBER^S TOPICAL COMPOUNDED PAIN?RELIEVING CREAM INCLUDED..
     Route: 061
  5. LIDOCAINE. [Suspect]
     Active Substance: LIDOCAINE
     Indication: PAIN
     Dosage: REPEATED APPLICATION OF A FAMILY MEMBER^S TOPICAL COMPOUNDED PAIN?RELIEVING CREAM INCLUDED..
     Route: 061
  6. KETAMINE [Suspect]
     Active Substance: KETAMINE
     Indication: PROMOTION OF WOUND HEALING
  7. CLONIDINE. [Suspect]
     Active Substance: CLONIDINE
     Indication: PAIN
     Dosage: REPEATED APPLICATION OF A FAMILY MEMBER^S TOPICAL COMPOUNDED PAIN?RELIEVING CREAM INCLUDED..
     Route: 061
  8. LIDOCAINE. [Suspect]
     Active Substance: LIDOCAINE
     Indication: PROMOTION OF WOUND HEALING

REACTIONS (11)
  - Somnolence [Recovered/Resolved]
  - Intentional product misuse [Recovered/Resolved]
  - Hypotension [Recovered/Resolved]
  - Depression [Recovered/Resolved]
  - Toxicity to various agents [Recovered/Resolved]
  - Wrong product administered [Recovered/Resolved]
  - Sinus bradycardia [Recovered/Resolved]
  - Product administration error [Recovered/Resolved]
  - Overdose [Recovered/Resolved]
  - Dizziness postural [Recovered/Resolved]
  - Bradycardia [Recovered/Resolved]
